FAERS Safety Report 12962691 (Version 1)
Quarter: 2016Q4

REPORT INFORMATION
  Report Type: Spontaneous
  Country: US (occurrence: US)
  Receive Date: 20161121
  Receipt Date: 20161121
  Transmission Date: 20170207
  Serious: No
  Sender: FDA-Public Use
  Company Number: US-TAIHO ONCOLOGY INC-EU-2016-02995

PATIENT
  Sex: Male

DRUGS (12)
  1. GLIPIZIDE. [Concomitant]
     Active Substance: GLIPIZIDE
     Route: 048
  2. SENNA ALEXANDRINA [Concomitant]
     Active Substance: SENNA LEAF
     Route: 048
  3. OXYBUTYNIN [Concomitant]
     Active Substance: OXYBUTYNIN
     Route: 048
  4. BISOPROLOL FUMARATE. [Concomitant]
     Active Substance: BISOPROLOL FUMARATE
     Route: 048
  5. FISH OIL [Concomitant]
     Active Substance: FISH OIL
     Route: 048
  6. DICYCLOVERINE [Concomitant]
     Active Substance: DICYCLOMINE HYDROCHLORIDE
     Route: 048
  7. LONSURF [Suspect]
     Active Substance: TIPIRACIL HYDROCHLORIDE\TRIFLURIDINE
     Indication: COLORECTAL CANCER
     Route: 048
     Dates: start: 20161014
  8. LEVEMIR [Concomitant]
     Active Substance: INSULIN DETEMIR
     Route: 058
  9. COLECALCIFEROL/CALCIUM CARBONATE [Concomitant]
     Route: 048
  10. NOVOLOG [Concomitant]
     Active Substance: INSULIN ASPART
     Route: 058
  11. MAGNESIUM [Concomitant]
     Active Substance: MAGNESIUM
     Route: 048
  12. NEXIUM [Concomitant]
     Active Substance: ESOMEPRAZOLE MAGNESIUM
     Dosage: NI

REACTIONS (3)
  - Decreased appetite [Unknown]
  - Nausea [Unknown]
  - Fatigue [Unknown]

NARRATIVE: CASE EVENT DATE: 2016
